FAERS Safety Report 19015483 (Version 1)
Quarter: 2021Q1

REPORT INFORMATION
  Report Type: Report from Study
  Country: US (occurrence: US)
  Receive Date: 20210316
  Receipt Date: 20210316
  Transmission Date: 20210420
  Serious: No
  Sender: FDA-Public Use
  Company Number: NVSC2021US058072

PATIENT
  Age: 65 Year
  Sex: Male

DRUGS (1)
  1. ENTRESTO [Suspect]
     Active Substance: SACUBITRIL\VALSARTAN
     Indication: PRODUCT USED FOR UNKNOWN INDICATION
     Dosage: UNK, BID
     Route: 048
     Dates: start: 2019

REACTIONS (7)
  - Psychomotor hyperactivity [Unknown]
  - Myopathy [Unknown]
  - Fatigue [Unknown]
  - Back disorder [Unknown]
  - Limb discomfort [Unknown]
  - Weight decreased [Unknown]
  - Throat clearing [Unknown]
